APPROVED DRUG PRODUCT: BETAMETHASONE DIPROPIONATE
Active Ingredient: BETAMETHASONE DIPROPIONATE
Strength: EQ 0.05% BASE
Dosage Form/Route: CREAM;TOPICAL
Application: A071476 | Product #001
Applicant: TEVA PHARMACEUTICALS USA INC
Approved: Aug 10, 1987 | RLD: No | RS: No | Type: DISCN